FAERS Safety Report 19149977 (Version 2)
Quarter: 2021Q2

REPORT INFORMATION
  Report Type: Report from Study
  Country: US (occurrence: US)
  Receive Date: 20210417
  Receipt Date: 20210504
  Transmission Date: 20210717
  Serious: Yes (Other)
  Sender: FDA-Public Use
  Company Number: US-UCBSA-2021016190

PATIENT
  Age: 51 Year
  Sex: Male
  Weight: 95.25 kg

DRUGS (5)
  1. LACOSAMIDE. [Suspect]
     Active Substance: LACOSAMIDE
     Indication: SEIZURE
     Dosage: 200 MILLIGRAM, 2X/DAY (BID)
     Route: 048
     Dates: end: 20210404
  2. CENOBAMATE. [Concomitant]
     Active Substance: CENOBAMATE
     Indication: EPILEPSY
     Dosage: 50 MILLIGRAM, ONCE DAILY (QD)
     Route: 048
     Dates: start: 202103
  3. CENOBAMATE. [Concomitant]
     Active Substance: CENOBAMATE
     Dosage: GRADUAL INCREASE
     Route: 048
  4. LACOSAMIDE. [Suspect]
     Active Substance: LACOSAMIDE
     Dosage: 100 MILLIGRAM, 2X/DAY (BID)
     Route: 048
     Dates: start: 20210405
  5. KEPPRA [Suspect]
     Active Substance: LEVETIRACETAM
     Indication: SEIZURE
     Dosage: 2000 MG IN MORNING AND 1000 MG IN EVENING
     Route: 048

REACTIONS (6)
  - Fall [Recovered/Resolved]
  - Product use issue [Unknown]
  - Loss of employment [Unknown]
  - Seizure [Recovered/Resolved]
  - Inability to afford medication [Unknown]
  - Head injury [Recovered/Resolved]

NARRATIVE: CASE EVENT DATE: 20201216
